FAERS Safety Report 8525577-6 (Version None)
Quarter: 2012Q3

REPORT INFORMATION
  Report Type: 
  Country: None (occurrence: None)
  Receive Date: 20120720
  Receipt Date: 20120710
  Transmission Date: 20120928
  Serious: Yes (Hospitalization)
  Sender: FDA-Public Use
  Company Number: US-009507513-1207USA003482

PATIENT

DRUGS (4)
  1. ZOLEDRONIC ACID [Suspect]
     Indication: OSTEOPOROSIS
  2. VITAMIN D (UNSPECIFIED) [Concomitant]
     Indication: OSTEOPOROSIS
  3. FOSAMAX [Suspect]
     Indication: OSTEOPOROSIS
     Route: 048
  4. CALCIUM (UNSPECIFIED) [Concomitant]
     Indication: OSTEOPOROSIS

REACTIONS (3)
  - PAIN IN EXTREMITY [None]
  - HIP FRACTURE [None]
  - GAIT DISTURBANCE [None]
